FAERS Safety Report 19743896 (Version 1)
Quarter: 2021Q3

REPORT INFORMATION
  Report Type: Spontaneous
  Country: IN (occurrence: IN)
  Receive Date: 20210824
  Receipt Date: 20210824
  Transmission Date: 20211014
  Serious: Yes (Hospitalization, Other)
  Sender: FDA-Public Use
  Company Number: IN-SETONPHARMA-2021SETLIT00026

PATIENT
  Sex: Female

DRUGS (2)
  1. PREDNISOLONE. [Suspect]
     Active Substance: PREDNISOLONE
     Route: 065
  2. PREDNISOLONE. [Suspect]
     Active Substance: PREDNISOLONE
     Indication: SYSTEMIC LUPUS ERYTHEMATOSUS
     Route: 065

REACTIONS (5)
  - Hypoalbuminaemia [Recovering/Resolving]
  - Pyrexia [Recovering/Resolving]
  - Lupus pancreatitis [Recovering/Resolving]
  - Abdominal pain [Recovering/Resolving]
  - Intra-abdominal fluid collection [Recovering/Resolving]
